FAERS Safety Report 7341140-7 (Version None)
Quarter: 2011Q1

REPORT INFORMATION
  Report Type: 
  Country: None (occurrence: None)
  Receive Date: 20110309
  Receipt Date: 20110301
  Transmission Date: 20110831
  Serious: Yes (Other)
  Sender: FDA-Public Use
  Company Number: A0917020A

PATIENT
  Sex: Male

DRUGS (3)
  1. VENTOLIN HFA [Suspect]
     Route: 055
     Dates: start: 20100101
  2. ADVAIR DISKUS 100/50 [Suspect]
     Route: 055
     Dates: start: 20101201
  3. SYMBICORT [Suspect]
     Route: 065

REACTIONS (4)
  - OVERDOSE [None]
  - DIZZINESS [None]
  - ORAL DISORDER [None]
  - LOSS OF CONSCIOUSNESS [None]
